FAERS Safety Report 11350348 (Version 1)
Quarter: 2015Q3

REPORT INFORMATION
  Report Type: Spontaneous
  Country: JP (occurrence: JP)
  Receive Date: 20150807
  Receipt Date: 20150807
  Transmission Date: 20151125
  Serious: Yes (Hospitalization)
  Sender: FDA-Public Use
  Company Number: JP-MALLINCKRODT-T201503771

PATIENT
  Age: 83 Year
  Sex: Female
  Weight: 80 kg

DRUGS (8)
  1. METHADONE [Suspect]
     Active Substance: METHADONE HYDROCHLORIDE
     Indication: CANCER PAIN
     Dosage: 10 MG (20 MG DAILY DOSE)
     Route: 048
     Dates: start: 20150526, end: 20150601
  2. RINDERON V [Concomitant]
     Active Substance: BETAMETHASONE VALERATE
     Dosage: 1 MG
     Route: 048
     Dates: end: 20150601
  3. FENTOS [Concomitant]
     Active Substance: FENTANYL
     Dosage: 4 MG
     Route: 062
     Dates: end: 20150525
  4. FENTOS [Concomitant]
     Active Substance: FENTANYL
     Dosage: 2 MG
     Route: 062
     Dates: end: 20150527
  5. OXINORM [Concomitant]
     Active Substance: OXYCODONE HYDROCHLORIDE
     Dosage: 20 MG, PRN
     Route: 048
     Dates: start: 20150525, end: 20150529
  6. MAGMITT [Concomitant]
     Active Substance: MAGNESIUM OXIDE
     Dosage: 1980 MG
     Route: 048
     Dates: end: 20150601
  7. SEROQUEL [Concomitant]
     Active Substance: QUETIAPINE FUMARATE
     Dosage: 25 MG
     Route: 048
     Dates: end: 20150601
  8. LANSOPRAZOLE. [Concomitant]
     Active Substance: LANSOPRAZOLE
     Dosage: 15 MG
     Route: 048
     Dates: end: 20150601

REACTIONS (1)
  - Oral candidiasis [Recovering/Resolving]

NARRATIVE: CASE EVENT DATE: 20150601
